FAERS Safety Report 7255193-8 (Version None)
Quarter: 2011Q1

REPORT INFORMATION
  Report Type: 
  Country: None (occurrence: None)
  Receive Date: 20110129
  Receipt Date: 20100208
  Transmission Date: 20110831
  Serious: No
  Sender: FDA-Public Use
  Company Number: US-ABBOTT-10P-163-0625393-00

PATIENT
  Sex: Female
  Weight: 90.8 kg

DRUGS (13)
  1. SYNTHROID [Concomitant]
     Indication: HYPOTHYROIDISM
  2. PROZAC [Concomitant]
     Indication: ANXIETY
  3. FISH OIL [Concomitant]
     Indication: CARDIOVASCULAR EVENT PROPHYLAXIS
  4. LASIX [Concomitant]
     Indication: HYPERTENSION
  5. SIMVASTATIN [Concomitant]
     Indication: PRODUCT USED FOR UNKNOWN INDICATION
  6. OMEPRAZOLE [Concomitant]
     Indication: GASTROOESOPHAGEAL REFLUX DISEASE
  7. ACTOS [Concomitant]
     Indication: DIABETES MELLITUS
  8. ROPINIROLE [Concomitant]
     Indication: RESTLESS LEGS SYNDROME
  9. ASPIRIN [Concomitant]
     Indication: CARDIOVASCULAR EVENT PROPHYLAXIS
  10. HUMIRA [Suspect]
     Indication: PSORIASIS
     Dates: start: 20090101, end: 20100101
  11. SYNTHROID [Concomitant]
  12. HUMIRA [Suspect]
     Dates: start: 20100121
  13. BENAZEPRIL HYDROCHLORIDE [Concomitant]
     Indication: HYPERTENSION

REACTIONS (2)
  - PSORIASIS [None]
  - GAIT DISTURBANCE [None]
